FAERS Safety Report 7029745-4 (Version None)
Quarter: 2010Q4

REPORT INFORMATION
  Report Type: 
  Country: None (occurrence: None)
  Receive Date: 20101005
  Receipt Date: 20101005
  Transmission Date: 20110411
  Serious: Yes (Other)
  Sender: FDA-Public Use
  Company Number: None

PATIENT
  Sex: Male
  Weight: 54.8852 kg

DRUGS (1)
  1. OMNITROPE [Suspect]
     Indication: GROWTH HORMONE DEFICIENCY
     Dosage: 5.0 MG NIGHTLY SQ
     Route: 058
     Dates: start: 20100913, end: 20100917

REACTIONS (3)
  - ANGIOEDEMA [None]
  - ARTHRALGIA [None]
  - DYSPNOEA [None]
